FAERS Safety Report 6914775-0 (Version None)
Quarter: 2010Q3

REPORT INFORMATION
  Report Type: 
  Country: None (occurrence: None)
  Receive Date: 20100809
  Receipt Date: 20100730
  Transmission Date: 20110219
  Serious: Yes (Hospitalization, Other)
  Sender: FDA-Public Use
  Company Number: JP-GENZYME-THYM-1001729

PATIENT
  Age: 37 Year
  Sex: Female
  Weight: 42 kg

DRUGS (55)
  1. THYMOGLOBULIN [Suspect]
     Indication: BONE MARROW CONDITIONING REGIMEN
     Dosage: 100 MG, QD
     Route: 042
     Dates: start: 20090921, end: 20090921
  2. BROTIZOLAM [Concomitant]
     Indication: INSOMNIA
     Dosage: UNK
     Dates: start: 20090923, end: 20091104
  3. BROTIZOLAM [Concomitant]
     Dosage: UNK
     Dates: start: 20100115, end: 20100310
  4. ZOLPIDEM [Concomitant]
     Indication: INSOMNIA
     Dosage: UNK
     Dates: start: 20090923, end: 20091104
  5. ZOLPIDEM [Concomitant]
     Dosage: UNK
     Dates: start: 20100115, end: 20100310
  6. VORICONAZOLE [Concomitant]
     Indication: INFECTION PROPHYLAXIS
     Dosage: UNK
     Dates: start: 20090923, end: 20091104
  7. VORICONAZOLE [Concomitant]
     Dosage: UNK
     Dates: start: 20100115, end: 20100221
  8. OMEPRAZOLE [Concomitant]
     Indication: PROPHYLAXIS AGAINST GASTROINTESTINAL ULCER
     Dosage: UNK
     Dates: start: 20090923, end: 20091104
  9. OMEPRAZOLE [Concomitant]
     Dosage: UNK
     Dates: start: 20100115, end: 20100309
  10. SULFAMETHOPRIM [Concomitant]
     Indication: INFECTION PROPHYLAXIS
     Dosage: UNK
     Dates: start: 20090921, end: 20100310
  11. URSODIOL [Concomitant]
     Indication: PROPHYLAXIS
     Dosage: UNK
     Dates: start: 20090923, end: 20091104
  12. URSODIOL [Concomitant]
     Dosage: UNK
     Dates: start: 20100115, end: 20100310
  13. TACROLIMUS [Concomitant]
     Indication: ACUTE MYELOID LEUKAEMIA
     Dosage: UNK
     Dates: start: 20091023, end: 20091031
  14. TACROLIMUS [Concomitant]
     Dosage: UNK
     Dates: start: 20090924, end: 20091023
  15. ACYCLOVIR [Concomitant]
     Indication: INFECTION PROPHYLAXIS
     Dosage: UNK
     Dates: start: 20091029, end: 20091031
  16. ACYCLOVIR [Concomitant]
     Dosage: UNK
     Dates: start: 20100115, end: 20100309
  17. ACYCLOVIR [Concomitant]
     Dosage: UNK
     Dates: start: 20090921, end: 20091028
  18. TRAZODONE HYDROCHLORIDE [Concomitant]
     Indication: INSOMNIA
     Dosage: UNK
     Dates: start: 20091027, end: 20091103
  19. HYDROXYZINE PAMOATE [Concomitant]
     Indication: INSOMNIA
     Dosage: UNK
     Dates: start: 20100210, end: 20100309
  20. TOSUFLOXACIN TOSILATE [Concomitant]
     Indication: INFECTION PROPHYLAXIS
     Dosage: UNK
     Dates: start: 20100115, end: 20100204
  21. TOSUFLOXACIN TOSILATE [Concomitant]
     Dosage: UNK
     Dates: start: 20100222, end: 20100310
  22. ITRACONAZOLE [Concomitant]
     Indication: INFECTION PROPHYLAXIS
     Dosage: UNK
     Dates: start: 20100223, end: 20100309
  23. METHYLPREDNISOLONE SODIUM SUCCINATE [Concomitant]
     Indication: PREMEDICATION
     Dosage: UNK
     Dates: start: 20090921, end: 20090921
  24. CHLORPHENIRAMINE MALEATE [Concomitant]
     Indication: PRURITUS
     Dosage: UNK
     Dates: start: 20090925, end: 20090925
  25. CHLORPHENIRAMINE MALEATE [Concomitant]
     Dosage: UNK
     Dates: start: 20091007, end: 20091007
  26. CHLORPHENIRAMINE MALEATE [Concomitant]
     Dosage: UNK
     Dates: start: 20091009, end: 20091009
  27. CHLORPHENIRAMINE MALEATE [Concomitant]
     Dosage: UNK
     Dates: start: 20091012, end: 20091012
  28. CHLORPHENIRAMINE MALEATE [Concomitant]
     Dosage: UNK
     Dates: start: 20091014, end: 20091014
  29. CHLORPHENIRAMINE MALEATE [Concomitant]
     Dosage: UNK
     Dates: start: 20091019, end: 20091019
  30. CHLORPHENIRAMINE MALEATE [Concomitant]
     Dosage: UNK
     Dates: start: 20100118, end: 20100118
  31. HYDROCORTISONE SODIUM SUCCINATE [Concomitant]
     Indication: PRURITUS
     Dosage: UNK
     Dates: start: 20090925, end: 20090925
  32. HYDROCORTISONE SODIUM SUCCINATE [Concomitant]
     Dosage: UNK
     Dates: start: 20091007, end: 20091007
  33. HYDROCORTISONE SODIUM SUCCINATE [Concomitant]
     Dosage: UNK
     Dates: start: 20091014, end: 20091014
  34. HYDROCORTISONE SODIUM SUCCINATE [Concomitant]
     Dosage: UNK
     Dates: start: 20100122, end: 20100122
  35. HYDROCORTISONE SODIUM SUCCINATE [Concomitant]
     Dosage: UNK
     Dates: start: 20100125, end: 20100125
  36. HYDROCORTISONE SODIUM SUCCINATE [Concomitant]
     Dosage: UNK
     Dates: start: 20100127, end: 20100127
  37. HYDROCORTISONE SODIUM SUCCINATE [Concomitant]
     Dosage: UNK
     Dates: start: 20100129, end: 20100129
  38. HYDROCORTISONE SODIUM SUCCINATE [Concomitant]
     Dosage: UNK
     Dates: start: 20100201, end: 20100201
  39. HYDROCORTISONE SODIUM SUCCINATE [Concomitant]
     Dosage: UNK
     Dates: start: 20100203, end: 20100203
  40. HYDROCORTISONE SODIUM SUCCINATE [Concomitant]
     Dosage: UNK
     Dates: start: 20100205, end: 20100205
  41. HYDROCORTISONE SODIUM SUCCINATE [Concomitant]
     Dosage: UNK
     Dates: start: 20100209, end: 20100209
  42. METHOTREXATE [Concomitant]
     Indication: ACUTE MYELOID LEUKAEMIA
     Dosage: UNK
     Dates: start: 20090926, end: 20090926
  43. METHOTREXATE [Concomitant]
     Dosage: UNK
     Dates: start: 20090927, end: 20090927
  44. METHOTREXATE [Concomitant]
     Dosage: UNK
     Dates: start: 20091001, end: 20091001
  45. METHOTREXATE [Concomitant]
     Dosage: UNK
     Dates: start: 20091006, end: 20091006
  46. MAGNESIUM SULFATE [Concomitant]
     Indication: PROPHYLAXIS
     Dosage: UNK
     Dates: start: 20090928, end: 20091022
  47. HYDROXYZINE HYDROCHLORIDE [Concomitant]
     Indication: INSOMNIA
     Dosage: UNK
     Dates: start: 20091006, end: 20091006
  48. HYDROXYZINE HYDROCHLORIDE [Concomitant]
     Dosage: UNK
     Dates: start: 20091007, end: 20091007
  49. HYDROXYZINE HYDROCHLORIDE [Concomitant]
     Dosage: UNK
     Dates: start: 20091011, end: 20091011
  50. HYDROXYZINE HYDROCHLORIDE [Concomitant]
     Dosage: UNK
     Dates: start: 20091014, end: 20091028
  51. HYDROXYZINE HYDROCHLORIDE [Concomitant]
     Dosage: UNK
     Dates: start: 20100216, end: 20100221
  52. ACLARUBICIN HYDROCHLORIDE [Concomitant]
     Indication: ACUTE MYELOID LEUKAEMIA
     Dosage: UNK
     Dates: start: 20100119, end: 20100122
  53. GLYCERIN W [Concomitant]
     Indication: OEDEMA
     Dosage: UNK
     Dates: start: 20091017, end: 20091021
  54. GRANISETRON HYDROCHLORIDE [Concomitant]
     Indication: ANTIEMETIC SUPPORTIVE CARE
     Dosage: UNK
     Dates: start: 20100119, end: 20100122
  55. CYTARABINE [Concomitant]
     Indication: ACUTE MYELOID LEUKAEMIA
     Dosage: UNK
     Dates: start: 20100118, end: 20100201

REACTIONS (7)
  - ACUTE GRAFT VERSUS HOST DISEASE IN SKIN [None]
  - ACUTE MYELOID LEUKAEMIA RECURRENT [None]
  - HEADACHE [None]
  - NEUROPATHY PERIPHERAL [None]
  - ORAL DISORDER [None]
  - PRURITUS [None]
  - PYREXIA [None]
